FAERS Safety Report 7103846-4 (Version None)
Quarter: 2010Q4

REPORT INFORMATION
  Report Type: 
  Country: None (occurrence: None)
  Receive Date: 20101115
  Receipt Date: 20101112
  Transmission Date: 20110411
  Serious: Yes (Congenital Anomaly, Other)
  Sender: FDA-Public Use
  Company Number: US-PFIZER INC-2010092576

PATIENT

DRUGS (4)
  1. ZOLOFT [Suspect]
     Dosage: UNK
     Route: 064
  2. LEXAPRO [Concomitant]
     Indication: ANXIETY
     Route: 064
  3. LEXAPRO [Concomitant]
     Indication: DEPRESSION
  4. PRENATAL VITAMINS [Concomitant]
     Dosage: DAILY
     Route: 064

REACTIONS (4)
  - CONGENITAL CYSTIC KIDNEY DISEASE [None]
  - CONGENITAL HYDRONEPHROSIS [None]
  - DRUG EXPOSURE DURING PREGNANCY [None]
  - UMBILICAL CORD ABNORMALITY [None]
